FAERS Safety Report 18181848 (Version 1)
Quarter: 2020Q3

REPORT INFORMATION
  Report Type: Spontaneous
  Country: US (occurrence: US)
  Receive Date: 20200821
  Receipt Date: 20200821
  Transmission Date: 20201103
  Serious: Yes (Other)
  Sender: FDA-Public Use
  Company Number: US-JNJFOC-20200815442

PATIENT
  Age: 45 Year
  Sex: Female

DRUGS (6)
  1. SPRAVATO [Suspect]
     Active Substance: ESKETAMINE
     Dates: start: 20200418, end: 20200731
  2. SPRAVATO [Suspect]
     Active Substance: ESKETAMINE
     Indication: DEPRESSION
     Dates: start: 20200328, end: 20200415
  3. EFFEXOR [Concomitant]
     Active Substance: VENLAFAXINE HYDROCHLORIDE
     Dosage: XR
  4. CLONAZEPAM. [Concomitant]
     Active Substance: CLONAZEPAM
  5. TEMAZEPAM. [Concomitant]
     Active Substance: TEMAZEPAM
  6. PROPRANOLOL [Concomitant]
     Active Substance: PROPRANOLOL HYDROCHLORIDE

REACTIONS (3)
  - Pleural effusion [Unknown]
  - Cardiac failure [Unknown]
  - Cardiac valve disease [Unknown]
